FAERS Safety Report 9741029 (Version 1)
Quarter: 2013Q4

REPORT INFORMATION
  Report Type: Spontaneous
  Country: US (occurrence: US)
  Receive Date: 20131209
  Receipt Date: 20131209
  Transmission Date: 20140711
  Serious: Yes (Other)
  Sender: FDA-Public Use
  Company Number: US-PFIZER INC-2013350770

PATIENT
  Age: 55 Year
  Sex: Female
  Weight: 66.7 kg

DRUGS (2)
  1. EFFEXOR XR [Suspect]
     Indication: DEPRESSION
     Dosage: 75 MG, 2X/DAY (1 IN MORNING AND 1 AT NIGHT)
  2. LORTAB [Concomitant]
     Dosage: UNK

REACTIONS (4)
  - Road traffic accident [Unknown]
  - Memory impairment [Unknown]
  - Tooth fracture [Unknown]
  - Discomfort [Unknown]
